FAERS Safety Report 25153837 (Version 3)
Quarter: 2025Q2

REPORT INFORMATION
  Report Type: Spontaneous
  Country: CN (occurrence: CN)
  Receive Date: 20250403
  Receipt Date: 20250527
  Transmission Date: 20250716
  Serious: Yes (Other)
  Sender: SANOFI AVENTIS
  Company Number: CN-MLMSERVICE-20250320-PI452177-00077-1

PATIENT
  Age: 34 Year
  Sex: Male

DRUGS (2)
  1. CAPECITABINE [Suspect]
     Active Substance: CAPECITABINE
     Indication: Rectal adenocarcinoma
  2. OXALIPLATIN [Suspect]
     Active Substance: OXALIPLATIN
     Indication: Rectal adenocarcinoma

REACTIONS (6)
  - Drug-induced liver injury [Recovered/Resolved]
  - Venoocclusive liver disease [Recovered/Resolved]
  - Hepatic lesion [Recovered/Resolved]
  - Congestive hepatopathy [Recovered/Resolved]
  - Peliosis hepatis [Recovered/Resolved]
  - Vasodilatation [Recovered/Resolved]
